FAERS Safety Report 23093877 (Version 2)
Quarter: 2023Q4

REPORT INFORMATION
  Report Type: Spontaneous
  Country: US (occurrence: US)
  Receive Date: 20231023
  Receipt Date: 20231103
  Transmission Date: 20240109
  Serious: No
  Sender: FDA-Public Use
  Company Number: US-JNJFOC-20231018902

PATIENT
  Sex: Female

DRUGS (2)
  1. WOMENS ROGAINE UNSCENTED [Suspect]
     Active Substance: MINOXIDIL
     Indication: Product used for unknown indication
     Route: 061
     Dates: start: 20230919, end: 202309
  2. WOMENS ROGAINE [Suspect]
     Active Substance: MINOXIDIL
     Indication: Alopecia
     Dosage: RECOMMENDED PER PACKAGE
     Route: 061
     Dates: start: 20230919

REACTIONS (4)
  - Hair texture abnormal [Recovered/Resolved]
  - Alopecia [Recovered/Resolved]
  - Seborrhoea [Recovered/Resolved]
  - Overdose [Unknown]

NARRATIVE: CASE EVENT DATE: 20230919
